APPROVED DRUG PRODUCT: DOXYCYCLINE HYCLATE
Active Ingredient: DOXYCYCLINE HYCLATE
Strength: EQ 100MG BASE
Dosage Form/Route: TABLET;ORAL
Application: A213475 | Product #001
Applicant: ORYZA PHARMACEUTICALS INC
Approved: Mar 10, 2021 | RLD: No | RS: No | Type: DISCN